FAERS Safety Report 16797527 (Version 2)
Quarter: 2020Q3

REPORT INFORMATION
  Report Type: Spontaneous
  Country: PT (occurrence: PT)
  Receive Date: 20190912
  Receipt Date: 20200909
  Transmission Date: 20201102
  Serious: Yes (Hospitalization, Other)
  Sender: FDA-Public Use
  Company Number: PT-AUROBINDO-AUR-APL-2019-058134

PATIENT
  Age: 73 Year
  Sex: Male

DRUGS (7)
  1. BROMAZEPAM [Suspect]
     Active Substance: BROMAZEPAM
     Indication: PSYCHOTIC DISORDER
     Dosage: 3 MILLIGRAM, 3 TIMES A DAY
     Route: 065
  2. CYAMEMAZINE [Suspect]
     Active Substance: CYAMEMAZINE
     Indication: PRODUCT USED FOR UNKNOWN INDICATION
     Dosage: 20 MILLIGRAM, ONCE A DAY (AT BEDTIME)
     Route: 065
  3. LAMOTRIGINE. [Suspect]
     Active Substance: LAMOTRIGINE
     Indication: PRODUCT USED FOR UNKNOWN INDICATION
     Dosage: 200 MILLIGRAM, ONCE A DAY (AT BREAKFAST)
     Route: 065
  4. MIRTAZAPINE. [Suspect]
     Active Substance: MIRTAZAPINE
     Indication: BIPOLAR DISORDER
     Dosage: 15 MILLIGRAM, ONCE A DAY (AT BEDTIME)
     Route: 065
  5. QUETIAPINE. [Suspect]
     Active Substance: QUETIAPINE
     Indication: PSYCHOTIC DISORDER
     Dosage: 50 MILLIGRAM
     Route: 065
  6. QUETIAPINE. [Suspect]
     Active Substance: QUETIAPINE
     Dosage: 250 MILLIGRAM, ONCE A DAY (AT BEDTIME)
     Route: 065
  7. QUETIAPINE. [Suspect]
     Active Substance: QUETIAPINE
     Dosage: 300 MILLIGRAM, ONCE A DAY (AT BEDTIME)
     Route: 065
     Dates: start: 2018

REACTIONS (2)
  - Mania [Unknown]
  - Akathisia [Recovering/Resolving]

NARRATIVE: CASE EVENT DATE: 2014
